FAERS Safety Report 14247714 (Version 3)
Quarter: 2017Q4

REPORT INFORMATION
  Report Type: Spontaneous
  Country: US (occurrence: US)
  Receive Date: 20171204
  Receipt Date: 20171227
  Transmission Date: 20180321
  Serious: No
  Sender: FDA-Public Use
  Company Number: US-PFIZER INC-2017518802

PATIENT
  Sex: Male

DRUGS (1)
  1. LYRICA [Suspect]
     Active Substance: PREGABALIN
     Indication: MIGRAINE
     Dosage: 150 MG, UNK (150MG AT BEDTIME)

REACTIONS (3)
  - Product use in unapproved indication [Unknown]
  - Malaise [Unknown]
  - Aggression [Recovered/Resolved]
